FAERS Safety Report 16320645 (Version 5)
Quarter: 2019Q3

REPORT INFORMATION
  Report Type: Spontaneous
  Country: US (occurrence: US)
  Receive Date: 20190516
  Receipt Date: 20190815
  Transmission Date: 20191004
  Serious: Yes (Hospitalization)
  Sender: FDA-Public Use
  Company Number: US-TAKEDA-2019TUS029218

PATIENT
  Age: 71 Year
  Sex: Male

DRUGS (1)
  1. NINLARO [Suspect]
     Active Substance: IXAZOMIB CITRATE
     Indication: PLASMA CELL MYELOMA
     Dosage: 4 MILLIGRAM, 1/WEEK
     Route: 048
     Dates: start: 20190420

REACTIONS (10)
  - White blood cell count decreased [Unknown]
  - Constipation [Unknown]
  - Pneumonia [Unknown]
  - Rales [Unknown]
  - Haematoma [Unknown]
  - Oxygen saturation decreased [Unknown]
  - Cataract [Unknown]
  - Fatigue [Unknown]
  - Pyrexia [Unknown]
  - Asthenia [Unknown]

NARRATIVE: CASE EVENT DATE: 20190624
